FAERS Safety Report 24779383 (Version 2)
Quarter: 2025Q1

REPORT INFORMATION
  Report Type: Report from Study
  Country: BE (occurrence: BE)
  Receive Date: 20241226
  Receipt Date: 20250106
  Transmission Date: 20250408
  Serious: Yes (Hospitalization)
  Sender: PFIZER
  Company Number: BE-PFIZER INC-PV202400165798

PATIENT
  Age: 63 Year
  Sex: Female
  Weight: 93 kg

DRUGS (10)
  1. HYALURONIDASE-ZZXF\PERTUZUMAB\TRASTUZUMAB [Suspect]
     Active Substance: HYALURONIDASE-ZZXF\PERTUZUMAB\TRASTUZUMAB
     Indication: Breast cancer metastatic
     Route: 058
     Dates: start: 20240416, end: 20241210
  2. EPIRUBICIN HYDROCHLORIDE [Suspect]
     Active Substance: EPIRUBICIN HYDROCHLORIDE
     Dosage: UNK, EVERY 3 WEEKS
     Route: 042
     Dates: start: 20170125, end: 20170323
  3. INVESTIGATIONAL PRODUCT [Suspect]
     Active Substance: INVESTIGATIONAL PRODUCT
     Indication: Breast cancer metastatic
     Route: 048
     Dates: start: 20240416, end: 20241216
  4. TUCATINIB [Suspect]
     Active Substance: TUCATINIB
     Indication: Breast cancer metastatic
     Route: 048
     Dates: start: 20240416, end: 20241216
  5. LEVOTHYROXINE [Concomitant]
     Active Substance: LEVOTHYROXINE
     Indication: Hypothyroidism
     Dates: start: 20240314
  6. DOMPERIDONE\PANTOPRAZOLE SODIUM [Concomitant]
     Active Substance: DOMPERIDONE\PANTOPRAZOLE SODIUM
     Indication: Prophylaxis
     Dates: start: 20240307
  7. OXYCONTIN [Concomitant]
     Active Substance: OXYCODONE HYDROCHLORIDE
     Indication: Cancer pain
     Dates: start: 20240314
  8. OXYCODONE HYDROCHLORIDE [Concomitant]
     Active Substance: OXYCODONE HYDROCHLORIDE
     Indication: Cancer pain
     Dates: start: 20240314
  9. CALCIUM CARBONATE\CHOLECALCIFEROL [Concomitant]
     Active Substance: CALCIUM CARBONATE\CHOLECALCIFEROL
     Indication: Osteoporosis prophylaxis
     Dates: start: 20240208
  10. BEFACT FORTE [Concomitant]
     Indication: Polyneuropathy
     Dosage: 1X/DAY 1 TAB
     Dates: start: 20240321

REACTIONS (1)
  - Cardiac failure [Recovered/Resolved with Sequelae]

NARRATIVE: CASE EVENT DATE: 20241217
